FAERS Safety Report 10506964 (Version 2)
Quarter: 2014Q4

REPORT INFORMATION
  Report Type: Spontaneous
  Country: US (occurrence: US)
  Receive Date: 20141009
  Receipt Date: 20141017
  Transmission Date: 20150528
  Serious: Yes (Hospitalization)
  Sender: FDA-Public Use
  Company Number: US-JNJFOC-20141004220

PATIENT
  Sex: Male
  Weight: 75 kg

DRUGS (14)
  1. NITROGLYCERINE [Concomitant]
     Active Substance: NITROGLYCERIN
  2. MULTIVITAMINS [Concomitant]
     Active Substance: VITAMINS
  3. KCL [Concomitant]
     Active Substance: POTASSIUM CHLORIDE
  4. FAMOTIDINE. [Concomitant]
     Active Substance: FAMOTIDINE
  5. COREG [Concomitant]
     Active Substance: CARVEDILOL
  6. BACTRIM DS [Concomitant]
     Active Substance: SULFAMETHOXAZOLE\TRIMETHOPRIM
  7. NEURONTIN [Concomitant]
     Active Substance: GABAPENTIN
  8. VALTREX [Concomitant]
     Active Substance: VALACYCLOVIR HYDROCHLORIDE
  9. MIRALAX [Concomitant]
     Active Substance: POLYETHYLENE GLYCOL 3350
  10. IMBRUVICA [Suspect]
     Active Substance: IBRUTINIB
     Indication: CHRONIC LYMPHOCYTIC LEUKAEMIA
     Route: 048
     Dates: start: 20140506
  11. XARELTO [Concomitant]
     Active Substance: RIVAROXABAN
  12. VITAMIN D [Concomitant]
     Active Substance: CHOLECALCIFEROL
  13. ALLOPURINOL. [Concomitant]
     Active Substance: ALLOPURINOL
  14. AMLODIPINE [Concomitant]
     Active Substance: AMLODIPINE BESYLATE

REACTIONS (2)
  - Skin graft [Recovered/Resolved]
  - Vision blurred [Not Recovered/Not Resolved]

NARRATIVE: CASE EVENT DATE: 2014
